FAERS Safety Report 10395106 (Version 2)
Quarter: 2014Q3

REPORT INFORMATION
  Report Type: Spontaneous
  Country: AU (occurrence: AU)
  Receive Date: 20140820
  Receipt Date: 20140903
  Transmission Date: 20150326
  Serious: No
  Sender: FDA-Public Use
  Company Number: AU-JNJFOC-20140809115

PATIENT
  Sex: Male

DRUGS (2)
  1. DUROGESIC [Suspect]
     Active Substance: FENTANYL
     Indication: PRODUCT USED FOR UNKNOWN INDICATION
     Route: 062
  2. DUROGESIC [Suspect]
     Active Substance: FENTANYL
     Indication: PRODUCT USED FOR UNKNOWN INDICATION
     Route: 062

REACTIONS (7)
  - Dyskinesia [Not Recovered/Not Resolved]
  - Pain [Recovering/Resolving]
  - Incorrect drug administration duration [Recovering/Resolving]
  - Drug effect decreased [Unknown]
  - Drug administered at inappropriate site [Unknown]
  - Product quality issue [Unknown]
  - Withdrawal syndrome [Unknown]
